FAERS Safety Report 25860712 (Version 1)
Quarter: 2025Q3

REPORT INFORMATION
  Report Type: Spontaneous
  Country: US (occurrence: None)
  Receive Date: 20250928
  Receipt Date: 20250928
  Transmission Date: 20251020
  Serious: Yes (Hospitalization)
  Sender: FDA-CTU
  Company Number: None

PATIENT
  Sex: Male
  Weight: 63 kg

DRUGS (6)
  1. MYCOPHENOLIC ACID [Suspect]
     Active Substance: MYCOPHENOLIC ACID
     Indication: Renal transplant
     Dosage: 360 MG TWICE A DAY ORAL ?
     Route: 048
     Dates: start: 20210805
  2. NULOJIX [Suspect]
     Active Substance: BELATACEPT
     Indication: Renal transplant
     Route: 042
     Dates: start: 20210805
  3. FABRAZYME [Suspect]
     Active Substance: AGALSIDASE BETA
  4. TERIPARATIDE [Suspect]
     Active Substance: TERIPARATIDE
  5. MYCOPHENOLIC ACID [Concomitant]
     Active Substance: MYCOPHENOLIC ACID
  6. FORTEO [Concomitant]
     Active Substance: TERIPARATIDE

REACTIONS (8)
  - Product dose omission issue [None]
  - Pyrexia [None]
  - Inappropriate schedule of product administration [None]
  - Chills [None]
  - Urinary tract infection [None]
  - Heart rate increased [None]
  - Hypotension [None]
  - Cardiac pacemaker insertion [None]
